FAERS Safety Report 8071293-7 (Version None)
Quarter: 2012Q1

REPORT INFORMATION
  Report Type: 
  Country: None (occurrence: None)
  Receive Date: 20120125
  Receipt Date: 20120112
  Transmission Date: 20120608
  Serious: Yes (Hospitalization)
  Sender: FDA-Public Use
  Company Number: PHHY2012PL003031

PATIENT
  Age: 25 Year
  Sex: Female

DRUGS (4)
  1. MELOXICAM [Suspect]
  2. DICLOFENAC EPOLAMINE [Suspect]
     Dosage: 150 MG, DAILY
  3. GLUCOCORTICOSTEROIDS [Concomitant]
  4. NAPROXEN [Suspect]

REACTIONS (16)
  - SACROILIITIS [None]
  - HYPERAEMIA [None]
  - COLITIS [None]
  - C-REACTIVE PROTEIN INCREASED [None]
  - ILEAL ULCER [None]
  - AUTOIMMUNE THYROIDITIS [None]
  - DIARRHOEA [None]
  - DRUG INEFFECTIVE [None]
  - CHEST EXPANSION DECREASED [None]
  - OEDEMA MUCOSAL [None]
  - SPONDYLOARTHROPATHY [None]
  - MUSCULOSKELETAL STIFFNESS [None]
  - DYSPLASIA [None]
  - ANKYLOSING SPONDYLITIS [None]
  - CROHN'S DISEASE [None]
  - OEDEMA [None]
